FAERS Safety Report 8409978-2 (Version None)
Quarter: 2012Q2

REPORT INFORMATION
  Report Type: 
  Country: None (occurrence: None)
  Receive Date: 20120323
  Receipt Date: 20110511
  Transmission Date: 20120825
  Serious: Yes (Hospitalization)
  Sender: FDA-Public Use
  Company Number: 163-21880-11010789

PATIENT
  Age: 59 Year
  Sex: Female

DRUGS (4)
  1. VELCADE [Concomitant]
  2. DEXAMETHASONE [Concomitant]
  3. ASPIRIN [Concomitant]
  4. REVLIMID [Suspect]
     Indication: MULTIPLE MYELOMA
     Dosage: 25 MG, 2 WEEKS ON 1 OFF, PO
     Route: 048
     Dates: start: 20101222

REACTIONS (2)
  - DEEP VEIN THROMBOSIS [None]
  - PULMONARY EMBOLISM [None]
